FAERS Safety Report 5391262-5 (Version None)
Quarter: 2007Q3

REPORT INFORMATION
  Report Type: 
  Country: None (occurrence: None)
  Receive Date: 20070719
  Receipt Date: 20070713
  Transmission Date: 20080115
  Serious: Yes (Hospitalization)
  Sender: FDA-Public Use
  Company Number: US-ELI_LILLY_AND_COMPANY-US200702005150

PATIENT
  Age: 46 Year
  Sex: Male

DRUGS (4)
  1. ZYPREXA [Suspect]
     Indication: SCHIZOPHRENIA, PARANOID TYPE
     Dosage: 20 MG, UNK
     Dates: start: 20070201
  2. ZYPREXA [Suspect]
     Dosage: 15 MG, UNK
     Dates: start: 19970101, end: 20070201
  3. ZYPREXA [Suspect]
     Dosage: 15 MG, EACH EVENING
     Dates: start: 20070201
  4. ZYPREXA ZYDIS [Concomitant]
     Dosage: 5 MG, EACH MORNING
     Dates: start: 20070201

REACTIONS (9)
  - ABNORMAL BEHAVIOUR [None]
  - AGITATION [None]
  - DRUG INEFFECTIVE [None]
  - HALLUCINATION, AUDITORY [None]
  - MALAISE [None]
  - NAUSEA [None]
  - PSYCHOTIC DISORDER [None]
  - SCHIZOPHRENIA [None]
  - SOMNOLENCE [None]
